FAERS Safety Report 11540603 (Version 1)
Quarter: 2015Q3

REPORT INFORMATION
  Report Type: Spontaneous
  Country: US (occurrence: US)
  Receive Date: 20150923
  Receipt Date: 20150923
  Transmission Date: 20151125
  Serious: No
  Sender: FDA-Public Use
  Company Number: US-BEH-2015050792

PATIENT
  Sex: Female
  Weight: 73 kg

DRUGS (18)
  1. ALBUTEROL 90 MCG INHALER [Concomitant]
     Dosage: 1 PUFF PRN
  2. HEPARIN 10 UNITS/ML [Concomitant]
     Dosage: 10 UNITS/ML. FLUSH WITH 1-3ML PRE + OR POST MED + FOR LINE CARE
     Route: 042
  3. EPIPEN [Concomitant]
     Active Substance: EPINEPHRINE
     Dosage: 0.3 MG PRN ANA
     Route: 030
  4. DILTAZEM 2 MG [Concomitant]
     Dosage: 1-2 TAB Q2HP
     Route: 048
  5. ACETAMINOPHEN. [Concomitant]
     Active Substance: ACETAMINOPHEN
     Dosage: 325 MG PRIOR
     Route: 048
  6. PRIVIGEN [Suspect]
     Active Substance: HUMAN IMMUNOGLOBULIN G
     Indication: HYPOGAMMAGLOBULINAEMIA
     Route: 042
  7. TRAZODONE [Concomitant]
     Active Substance: TRAZODONE HYDROCHLORIDE
     Dosage: 1 TAB PRN
     Route: 048
  8. DIPHENHYDRAMINE 25 MG [Concomitant]
  9. ALBUTEROL 0.083% INHAL SOLN [Concomitant]
     Dosage: 1 VIAL PRN, 0.083%, ROA - NEB
  10. ALPRAZOLAM 0.25 MG [Concomitant]
     Active Substance: ALPRAZOLAM
     Dosage: 1 TAB PRN
     Route: 048
  11. DIPHENHYDRAMINE HYDROCHLORIDE. [Concomitant]
     Active Substance: DIPHENHYDRAMINE HYDROCHLORIDE
     Dosage: 50 MG PRIOR
     Route: 042
  12. NORMAL SALINE [Concomitant]
     Active Substance: SODIUM CHLORIDE
     Route: 042
  13. PULMICORT 90 MCG [Concomitant]
     Dosage: 90 MCG, 1 PUFF UD, ROA- INH
  14. PRIVIGEN [Suspect]
     Active Substance: HUMAN IMMUNOGLOBULIN G
     Indication: RESPIRATORY DISORDER
     Route: 042
  15. ADVAIR DISKUS 100-50 MCG BLST W/DEV [Concomitant]
     Dosage: 1 PUFF DAILY, 100-50MCG
  16. SODIUM CHLORIDE. [Concomitant]
     Active Substance: SODIUM CHLORIDE
     Dosage: FLUSH 1-50ML PRE +/OR POST MED + FOR LINE CARE
     Route: 042
  17. LORYNA 3 - 0.02 MG [Concomitant]
     Dosage: 3 MG-0.02 MG, 1 TAB DAILY
     Route: 048
  18. AZITHROMYCIN [Concomitant]
     Active Substance: AZITHROMYCIN ANHYDROUS
     Dosage: 1 TAB UAD
     Route: 048

REACTIONS (1)
  - Infection [Recovered/Resolved]
